FAERS Safety Report 5917092-0 (Version None)
Quarter: 2008Q4

REPORT INFORMATION
  Report Type: 
  Country: None (occurrence: None)
  Receive Date: 20081014
  Receipt Date: 20081006
  Transmission Date: 20090506
  Serious: Yes (Other)
  Sender: FDA-Public Use
  Company Number: BR-ALLERGAN-0812599US

PATIENT
  Sex: Female

DRUGS (2)
  1. ALESION TABLET [Suspect]
     Indication: ALLERGIC RESPIRATORY SYMPTOM
     Dosage: 10 MG, QD
     Route: 048
  2. RITROVIL [Concomitant]
     Indication: DEPRESSION

REACTIONS (4)
  - DEPRESSED LEVEL OF CONSCIOUSNESS [None]
  - DRY MOUTH [None]
  - FATIGUE [None]
  - TREMOR [None]
